FAERS Safety Report 5434249-6 (Version None)
Quarter: 2007Q3

REPORT INFORMATION
  Report Type: 
  Country: None (occurrence: None)
  Receive Date: 20070831
  Receipt Date: 20070720
  Transmission Date: 20080115
  Serious: No
  Sender: FDA-Public Use
  Company Number: A0665246A

PATIENT
  Age: 29 Year
  Sex: Female

DRUGS (2)
  1. ALLI [Suspect]
     Route: 048
     Dates: end: 20070711
  2. ACCUTANE [Concomitant]
     Indication: ACNE

REACTIONS (5)
  - ANAL DISCOMFORT [None]
  - DIARRHOEA [None]
  - FEELING ABNORMAL [None]
  - HAEMORRHOIDS [None]
  - PROCTALGIA [None]
